FAERS Safety Report 5301330-1 (Version None)
Quarter: 2007Q2

REPORT INFORMATION
  Report Type: 
  Country: None (occurrence: None)
  Receive Date: 20070418
  Receipt Date: 20070406
  Transmission Date: 20071010
  Serious: Yes (Hospitalization, Other)
  Sender: FDA-Public Use
  Company Number: US-PFIZER INC-2007028756

PATIENT
  Age: 58 Year
  Sex: Male

DRUGS (10)
  1. CHANTIX [Suspect]
  2. CLOPIDOGREL [Concomitant]
     Dosage: DAILY DOSE:75MG
  3. LOVASTATIN [Concomitant]
  4. OMEPRAZOLE [Concomitant]
  5. LISINOPRIL [Concomitant]
  6. ALBUTEROL [Concomitant]
  7. VITAMIN CAP [Concomitant]
  8. ACETAMINOPHEN [Concomitant]
  9. DEHYDROEPIANDROSTERONE [Concomitant]
  10. ALAVERT [Concomitant]

REACTIONS (4)
  - GRAND MAL CONVULSION [None]
  - HAEMATOCRIT DECREASED [None]
  - HAEMOGLOBIN DECREASED [None]
  - HEART VALVE OPERATION [None]
